FAERS Safety Report 8128809-1 (Version None)
Quarter: 2012Q1

REPORT INFORMATION
  Report Type: 
  Country: None (occurrence: None)
  Receive Date: 20120210
  Receipt Date: 20110309
  Transmission Date: 20120608
  Serious: No
  Sender: FDA-Public Use
  Company Number: US-BRISTOL-MYERS SQUIBB COMPANY-15592751

PATIENT
  Age: 56 Year
  Sex: Male

DRUGS (2)
  1. METHOTREXATE [Concomitant]
  2. ORENCIA [Suspect]
     Dosage: TOTAL INF TAKEN:10

REACTIONS (1)
  - DRUG INEFFECTIVE [None]
